FAERS Safety Report 9000220 (Version 2)
Quarter: 2013Q1

REPORT INFORMATION
  Report Type: Report from Study
  Country: US (occurrence: US)
  Receive Date: 20130102
  Receipt Date: 20130128
  Transmission Date: 20140127
  Serious: Yes (Life-Threatening, Hospitalization, Disabling)
  Sender: FDA-Public Use
  Company Number: US-ROCHE-1176228

PATIENT
  Age: 73 Year
  Sex: Male
  Weight: 74.5 kg

DRUGS (11)
  1. RITUXIMAB [Suspect]
     Indication: GRANULOMATOSIS WITH POLYANGIITIS
     Dosage: DATE OF MOST RECENT DOSE : 16/OCT/2012, 750 MG/M2, FREQUENCY : OTHER
     Route: 042
     Dates: start: 20120925
  2. XYZAL [Concomitant]
     Route: 048
     Dates: start: 2012
  3. METFORMIN [Concomitant]
     Route: 048
     Dates: start: 2004
  4. PREDNISONE [Concomitant]
     Indication: GRANULOMATOSIS WITH POLYANGIITIS
     Route: 048
     Dates: start: 20120919
  5. SULFAMETHOXAZOLE [Concomitant]
     Indication: GRANULOMATOSIS WITH POLYANGIITIS
     Route: 048
     Dates: start: 2012
  6. TRAMADOL [Concomitant]
     Route: 048
     Dates: start: 2010
  7. AMBEN [Concomitant]
     Route: 048
     Dates: start: 2008
  8. ALBUTEROL/IPRATROPIUM [Concomitant]
     Route: 055
     Dates: start: 2012
  9. GABAPENTIN [Concomitant]
     Route: 048
     Dates: start: 2007
  10. SINEMET [Concomitant]
     Route: 048
     Dates: start: 2007
  11. TRIMETHOPRIM [Concomitant]
     Indication: GRANULOMATOSIS WITH POLYANGIITIS
     Route: 048
     Dates: start: 2012

REACTIONS (2)
  - Atrial fibrillation [Recovering/Resolving]
  - Atrial flutter [Recovering/Resolving]
